FAERS Safety Report 9820800 (Version 1)
Quarter: 2013Q4

REPORT INFORMATION
  Report Type: Spontaneous
  Country: US (occurrence: None)
  Receive Date: 20131028
  Receipt Date: 20131028
  Transmission Date: 20140711
  Serious: Yes (Other)
  Sender: FDA-Public Use
  Company Number: 2013US001537

PATIENT
  Age: 49 Year
  Sex: Male
  Weight: 118 kg

DRUGS (3)
  1. ICLUSIG (PONATINIB) TABLET, 45MG [Suspect]
     Indication: CHRONIC MYELOID LEUKAEMIA
     Route: 048
     Dates: start: 20130421
  2. OXYCODONE [Concomitant]
  3. KLONOPIN (CLONAZEPAM) [Concomitant]

REACTIONS (1)
  - Headache [None]
